FAERS Safety Report 5187884-7 (Version None)
Quarter: 2006Q4

REPORT INFORMATION
  Report Type: 
  Country: None (occurrence: None)
  Receive Date: 20061221
  Receipt Date: 20061206
  Transmission Date: 20070319
  Serious: Yes (Hospitalization)
  Sender: FDA-Public Use
  Company Number: FR-AMGEN-UK202727

PATIENT
  Sex: Male

DRUGS (6)
  1. ARANESP [Suspect]
     Indication: ANAEMIA
     Route: 058
     Dates: start: 20061019, end: 20061019
  2. REBETOL [Suspect]
     Route: 048
     Dates: start: 20060919, end: 20061108
  3. INTERFERON ALFA [Suspect]
     Route: 058
     Dates: start: 20060926, end: 20061108
  4. PREVISCAN [Concomitant]
     Route: 065
     Dates: start: 20061120
  5. SUSTIVA [Concomitant]
     Route: 048
  6. COMBIVIR [Concomitant]
     Route: 048

REACTIONS (6)
  - ASTHENIA [None]
  - PROTEIN S DEFICIENCY [None]
  - PULMONARY EMBOLISM [None]
  - PYREXIA [None]
  - THROMBOPHLEBITIS [None]
  - VENOUS THROMBOSIS [None]
